FAERS Safety Report 5237495-X (Version None)
Quarter: 2007Q1

REPORT INFORMATION
  Report Type: 
  Country: None (occurrence: None)
  Receive Date: 20070213
  Receipt Date: 20070207
  Transmission Date: 20070707
  Serious: Yes (Other)
  Sender: FDA-Public Use
  Company Number: BE-PFIZER INC-2006144831

PATIENT
  Sex: Male

DRUGS (6)
  1. ACCUPRIL [Suspect]
     Indication: HYPERTENSION
     Route: 048
  2. DAFALGAN [Concomitant]
     Route: 048
  3. NOVONORM [Concomitant]
     Route: 048
  4. METFORMIN HCL [Concomitant]
     Route: 048
  5. SPASMOMEN [Concomitant]
     Route: 048
  6. FORLAX [Concomitant]
     Route: 048

REACTIONS (2)
  - HYPOKALAEMIA [None]
  - PANCREATITIS [None]
